FAERS Safety Report 7065870-X (Version None)
Quarter: 2010Q4

REPORT INFORMATION
  Report Type: 
  Country: None (occurrence: None)
  Receive Date: 20101027
  Receipt Date: 20101020
  Transmission Date: 20110411
  Serious: Yes (Hospitalization)
  Sender: FDA-Public Use
  Company Number: US-MPIJNJ-2010-05305

PATIENT
  Age: 75 Year
  Sex: Male
  Weight: 75.283 kg

DRUGS (3)
  1. VELCADE [Suspect]
     Indication: MULTIPLE MYELOMA
     Dosage: 2.4 MG, CYCLIC
     Route: 040
     Dates: start: 20100929, end: 20100929
  2. ZOMETA [Suspect]
     Indication: MULTIPLE MYELOMA
     Dosage: 4 MG, Q4WEEKS
     Route: 042
     Dates: start: 20100929, end: 20100929
  3. ZOMETA [Suspect]
     Indication: BONE DISORDER

REACTIONS (2)
  - COMPRESSION FRACTURE [None]
  - URINARY TRACT INFECTION [None]
